FAERS Safety Report 24293077 (Version 1)
Quarter: 2024Q3

REPORT INFORMATION
  Report Type: Spontaneous
  Country: US (occurrence: None)
  Receive Date: 20240906
  Receipt Date: 20240906
  Transmission Date: 20241016
  Serious: No
  Sender: DOMPE FARMACEUTICI
  Company Number: US-FARMAPROD-202311-3477

PATIENT
  Sex: Female

DRUGS (3)
  1. OXERVATE [Suspect]
     Active Substance: CENEGERMIN-BKBJ
     Indication: Neurotrophic keratopathy
     Route: 047
     Dates: start: 20231113
  2. OXERVATE [Suspect]
     Active Substance: CENEGERMIN-BKBJ
  3. UNSPECIFIED INGREDIENT [Concomitant]
     Active Substance: UNSPECIFIED INGREDIENT

REACTIONS (6)
  - Eye irritation [Unknown]
  - Eye pain [Recovering/Resolving]
  - Ocular discomfort [Unknown]
  - Eye swelling [Unknown]
  - Eyelid pain [Unknown]
  - Facial pain [Unknown]
